FAERS Safety Report 8619641-0 (Version None)
Quarter: 2012Q3

REPORT INFORMATION
  Report Type: 
  Country: None (occurrence: None)
  Receive Date: 20120824
  Receipt Date: 20120820
  Transmission Date: 20120928
  Serious: Yes (Other)
  Sender: FDA-Public Use
  Company Number: US-JNJFOC-20120804684

PATIENT
  Sex: Female

DRUGS (2)
  1. PROTONIX [Suspect]
     Indication: DYSPEPSIA
     Route: 065
     Dates: start: 20120808
  2. DOXORUBICIN HYDROCHLORIDE [Suspect]
     Indication: OVARIAN CANCER
     Route: 042
     Dates: start: 20120625

REACTIONS (6)
  - DEHYDRATION [None]
  - COUGH [None]
  - ABDOMINAL DISTENSION [None]
  - ABDOMINAL PAIN [None]
  - DYSPEPSIA [None]
  - VOMITING [None]
